FAERS Safety Report 10409676 (Version 4)
Quarter: 2015Q1

REPORT INFORMATION
  Report Type: Report from Study
  Country: DE (occurrence: DE)
  Receive Date: 20140826
  Receipt Date: 20150105
  Transmission Date: 20150720
  Serious: Yes (Hospitalization, Other)
  Sender: FDA-Public Use
  Company Number: PHHY2014DE086535

PATIENT
  Age: 59 Year
  Sex: Male
  Weight: 80 kg

DRUGS (10)
  1. LDK378 [Suspect]
     Active Substance: CERITINIB
     Dosage: 750 MG
     Route: 048
     Dates: start: 20140714, end: 20140820
  2. LDK378 [Suspect]
     Active Substance: CERITINIB
     Dosage: 600 MG, UNK
     Route: 048
     Dates: start: 20141223, end: 20141229
  3. METAMIZOL//METAMIZOLE SODIUM [Concomitant]
     Indication: PAIN
     Dosage: 500 MG, TID
     Route: 048
     Dates: start: 20140820
  4. LDK378 [Suspect]
     Active Substance: CERITINIB
     Indication: LUNG NEOPLASM MALIGNANT
     Dosage: 750 MG
     Route: 048
     Dates: start: 20140704, end: 20140709
  5. LDK378 [Suspect]
     Active Substance: CERITINIB
     Dosage: 450 MG, QD
     Route: 048
  6. OXYCODON [Concomitant]
     Active Substance: OXYCODONE
     Indication: PAIN
     Dosage: 20 MG (2 X 20 MG), BID
     Route: 048
     Dates: start: 20140820
  7. DEXAMETHASONE. [Concomitant]
     Active Substance: DEXAMETHASONE
     Indication: BRAIN OEDEMA
     Dosage: 1 MG, UNK
     Route: 048
  8. DEXAMETHASONE. [Concomitant]
     Active Substance: DEXAMETHASONE
     Dosage: 0.5 ML, UNK
     Dates: start: 20140820
  9. PANTOPRAZOLE [Concomitant]
     Active Substance: PANTOPRAZOLE SODIUM
     Indication: GASTRITIS
     Dosage: 20 MG (1X 20 MG), QD
     Route: 048
     Dates: start: 20140820
  10. OPIPRAMOL [Concomitant]
     Active Substance: OPIPRAMOL
     Indication: DEPRESSION
     Dosage: 25 MG, BID
     Route: 048
     Dates: start: 20140820

REACTIONS (13)
  - Metastases to central nervous system [Recovered/Resolved]
  - Atrial flutter [Recovered/Resolved]
  - Blood testosterone decreased [Unknown]
  - Aspartate aminotransferase increased [Recovering/Resolving]
  - Pneumonia [Unknown]
  - Lymphoedema [Recovering/Resolving]
  - Bronchitis [Recovering/Resolving]
  - Lung abscess [Not Recovered/Not Resolved]
  - Tachycardia [Recovered/Resolved]
  - Cough [Recovering/Resolving]
  - Blood creatinine increased [Recovering/Resolving]
  - Infectious pleural effusion [Not Recovered/Not Resolved]
  - Alanine aminotransferase increased [Recovering/Resolving]

NARRATIVE: CASE EVENT DATE: 20140704
